FAERS Safety Report 5870594-8 (Version None)
Quarter: 2008Q3

REPORT INFORMATION
  Report Type: 
  Country: None (occurrence: None)
  Receive Date: 20080904
  Receipt Date: 20080829
  Transmission Date: 20090109
  Serious: Yes (Death)
  Sender: FDA-Public Use
  Company Number: A0745819A

PATIENT
  Age: 73 Year
  Sex: Female
  Weight: 30 kg

DRUGS (2)
  1. SERETIDE [Suspect]
     Route: 055
  2. ATROVENT [Concomitant]
     Route: 055
     Dates: start: 20071201, end: 20080426

REACTIONS (1)
  - PNEUMONIA [None]
